FAERS Safety Report 21375681 (Version 2)
Quarter: 2022Q4

REPORT INFORMATION
  Report Type: Report from Study
  Country: FR (occurrence: FR)
  Receive Date: 20220926
  Receipt Date: 20221011
  Transmission Date: 20230112
  Serious: Yes (Death)
  Sender: FDA-Public Use
  Company Number: FR-GILEAD-2022-0598905

PATIENT
  Sex: Male
  Weight: 74 kg

DRUGS (2)
  1. SACITUZUMAB GOVITECAN [Suspect]
     Active Substance: SACITUZUMAB GOVITECAN
     Indication: Transitional cell cancer of the renal pelvis and ureter
     Dosage: 10 MG/KG, C1D1 AND C1D8
     Route: 042
     Dates: start: 20220727
  2. SACITUZUMAB GOVITECAN [Suspect]
     Active Substance: SACITUZUMAB GOVITECAN
     Dosage: 7.5 MG/KG, C2D1
     Route: 042
     Dates: end: 20220824

REACTIONS (1)
  - Death [Fatal]

NARRATIVE: CASE EVENT DATE: 20220916
